FAERS Safety Report 4377463-3 (Version None)
Quarter: 2004Q2

REPORT INFORMATION
  Report Type: 
  Country: None (occurrence: None)
  Receive Date: 20040609
  Receipt Date: 20040525
  Transmission Date: 20050107
  Serious: Yes (Disabling, Other)
  Sender: FDA-Public Use
  Company Number: JP_040403026

PATIENT
  Age: 57 Year
  Sex: Female
  Weight: 50 kg

DRUGS (6)
  1. VANCOMYCIN [Suspect]
     Indication: STAPHYLOCOCCAL SEPSIS
     Dosage: 500 MG/4 DAY
     Dates: start: 20040414, end: 20040418
  2. FUTHAN (NAFAMOSTAT MESILATE) [Concomitant]
  3. PREDNISOLONE [Concomitant]
  4. PENTASA [Concomitant]
  5. PIPERACILLIN SODIUM [Concomitant]
  6. PRIMAXIN [Concomitant]

REACTIONS (6)
  - ALANINE AMINOTRANSFERASE INCREASED [None]
  - ASPARTATE AMINOTRANSFERASE INCREASED [None]
  - BLOOD CREATININE DECREASED [None]
  - DEAFNESS [None]
  - HEPATIC FUNCTION ABNORMAL [None]
  - HYPOACUSIS [None]
